FAERS Safety Report 21604316 (Version 2)
Quarter: 2022Q4

REPORT INFORMATION
  Report Type: Spontaneous
  Country: US (occurrence: US)
  Receive Date: 20221116
  Receipt Date: 20221227
  Transmission Date: 20230113
  Serious: Yes (Death, Hospitalization)
  Sender: FDA-Public Use
  Company Number: US-Calliditas-2022CAL00513

PATIENT
  Age: 79 Year
  Sex: Female

DRUGS (1)
  1. TARPEYO [Suspect]
     Active Substance: BUDESONIDE
     Indication: Haematuria
     Dosage: 16 MG (4 MG CAPSULES) DAILY
     Route: 048
     Dates: start: 20220413, end: 20221108

REACTIONS (5)
  - Gastrointestinal haemorrhage [Fatal]
  - Cushingoid [Unknown]
  - Asthenia [Fatal]
  - Anaemia [Unknown]
  - Occult blood [Unknown]

NARRATIVE: CASE EVENT DATE: 20221028
